FAERS Safety Report 18847920 (Version 4)
Quarter: 2021Q1

REPORT INFORMATION
  Report Type: Spontaneous
  Country: GB (occurrence: GB)
  Receive Date: 20210204
  Receipt Date: 20210309
  Transmission Date: 20210419
  Serious: Yes (Other)
  Sender: FDA-Public Use
  Company Number: GB-GLAXOSMITHKLINE-GB2021EME025673

PATIENT

DRUGS (3)
  1. SEREVENT EVOHALER [Suspect]
     Active Substance: SALMETEROL XINAFOATE
     Indication: ASTHMA
     Dosage: UNK, 25MCG?INH 134A 1X120D GB
  2. SERETIDE [Suspect]
     Active Substance: FLUTICASONE PROPIONATE\SALMETEROL XINAFOATE
     Indication: PRODUCT USED FOR UNKNOWN INDICATION
     Dosage: UNK
  3. VENTOLIN [Suspect]
     Active Substance: ALBUTEROL SULFATE
     Indication: PRODUCT USED FOR UNKNOWN INDICATION
     Dosage: UNK

REACTIONS (9)
  - Dyspnoea [Unknown]
  - Ill-defined disorder [Unknown]
  - Asthma [Unknown]
  - Breast pain [Unknown]
  - Neoplasm malignant [Unknown]
  - Pneumonia [Unknown]
  - Respiratory tract irritation [Unknown]
  - Incorrect dose administered [Unknown]
  - Product complaint [Unknown]
